FAERS Safety Report 10617471 (Version 1)
Quarter: 2014Q4

REPORT INFORMATION
  Report Type: Spontaneous
  Country: US (occurrence: US)
  Receive Date: 20141201
  Receipt Date: 20141201
  Transmission Date: 20150529
  Serious: No
  Sender: FDA-Public Use
  Company Number: US-ASTRAZENECA-2014SE91176

PATIENT
  Age: 70 Year
  Sex: Male
  Weight: 79 kg

DRUGS (1)
  1. NEXIUM 24HR [Suspect]
     Active Substance: ESOMEPRAZOLE MAGNESIUM
     Indication: GASTROOESOPHAGEAL REFLUX DISEASE
     Route: 048
     Dates: start: 20141119

REACTIONS (5)
  - Heart rate increased [Unknown]
  - Intentional product misuse [Unknown]
  - Vision blurred [Unknown]
  - Drug intolerance [Unknown]
  - Hallucination [Unknown]

NARRATIVE: CASE EVENT DATE: 20141119
